FAERS Safety Report 16797671 (Version 3)
Quarter: 2019Q3

REPORT INFORMATION
  Report Type: Spontaneous
  Country: ES (occurrence: ES)
  Receive Date: 20190912
  Receipt Date: 20190918
  Transmission Date: 20191005
  Serious: Yes (Other)
  Sender: FDA-Public Use
  Company Number: ES-JNJFOC-20190910204

PATIENT
  Age: 4 Month
  Sex: Male
  Weight: 8.1 kg

DRUGS (2)
  1. MINOXIDIL. [Suspect]
     Active Substance: MINOXIDIL
     Indication: PRODUCT USED FOR UNKNOWN INDICATION
     Dosage: THE PRODUCT WITH WRONG ACTIVE INGREDIENT. THE MAGISTRAL FORMULA OMEPRAZOLE THAT WAS BEING ADMINISTRA
     Route: 065
     Dates: start: 20190521, end: 20190607
  2. OMEPRAZOLE. [Suspect]
     Active Substance: OMEPRAZOLE
     Indication: GASTROOESOPHAGEAL REFLUX DISEASE
     Dosage: THE MAGISTRAL FORMULA: OMEPRAZOLE 3.5MG/ML ORAL SUSPENSION CPS40 ML BATCH AFFECTED WITH A PHARMACEUT
     Route: 065
     Dates: start: 20190521, end: 20190607

REACTIONS (2)
  - Product formulation issue [Recovered/Resolved]
  - Hypertrichosis [Recovering/Resolving]

NARRATIVE: CASE EVENT DATE: 20190521
